FAERS Safety Report 4400769-6 (Version None)
Quarter: 2004Q3

REPORT INFORMATION
  Report Type: 
  Country: None (occurrence: None)
  Receive Date: 20040907
  Receipt Date: 20030518
  Transmission Date: 20050211
  Serious: Yes (Hospitalization, Other)
  Sender: FDA-Public Use
  Company Number: US-BRISTOL-MYERS SQUIBB COMPANY-12281150

PATIENT
  Age: 70 Year
  Sex: Female

DRUGS (6)
  1. COUMADIN [Suspect]
     Indication: AORTIC VALVE REPLACEMENT
     Dosage: ALTERNATING SCHEDULE OF 7.5 MG AND 5 MG EACH DAY
     Route: 048
  2. COZAAR [Concomitant]
  3. LASIX [Concomitant]
  4. TENORMIN [Concomitant]
  5. NEURONTIN [Concomitant]
  6. PROTONIX [Concomitant]

REACTIONS (5)
  - ANAEMIA [None]
  - ASTHENIA [None]
  - HAEMORRHAGE [None]
  - LARGE INTESTINE PERFORATION [None]
  - TINNITUS [None]
